FAERS Safety Report 6830596-1 (Version None)
Quarter: 2010Q3

REPORT INFORMATION
  Report Type: 
  Country: None (occurrence: None)
  Receive Date: 20100706
  Receipt Date: 20100624
  Transmission Date: 20110219
  Serious: Yes (Death, Life-Threatening, Hospitalization, Other)
  Sender: FDA-Public Use
  Company Number: 2009AC000404

PATIENT
  Age: 79 Year
  Sex: Female

DRUGS (20)
  1. DIGOXIN [Suspect]
     Indication: ATRIAL FIBRILLATION
     Dosage: 0.125 MG; QD; PO
     Route: 048
  2. DIGOXIN [Suspect]
     Indication: ATRIAL FIBRILLATION
     Dosage: 0.125 MG; QD; PO
     Route: 048
     Dates: start: 20050826, end: 20080113
  3. DIGOXIN [Suspect]
     Indication: ATRIAL FIBRILLATION
     Dosage: 0.25 MG; QD; PO
     Route: 048
     Dates: start: 20001201, end: 20050825
  4. ATACAND [Concomitant]
  5. PLAVIX [Concomitant]
  6. GLIMEPIRIDE [Concomitant]
  7. CARVEDILOL [Concomitant]
  8. ZANTAC [Concomitant]
  9. ASPIRIN [Concomitant]
  10. LASIX [Concomitant]
  11. COUMADIN [Concomitant]
  12. SYNTHROID [Concomitant]
  13. ZESTRIL [Concomitant]
  14. AVANDIA [Concomitant]
  15. POTASSIUM CHLORIDE [Concomitant]
  16. ALBUTEROL [Concomitant]
  17. ROCEPHIN [Concomitant]
  18. LEVAQUIN [Concomitant]
  19. DOPAMINE HCL [Concomitant]
  20. OXYGEN [Concomitant]

REACTIONS (25)
  - ANHEDONIA [None]
  - BACK PAIN [None]
  - BLOOD GLUCOSE INCREASED [None]
  - BLOOD SODIUM DECREASED [None]
  - CARDIAC FAILURE CONGESTIVE [None]
  - CULTURE URINE POSITIVE [None]
  - DYSARTHRIA [None]
  - DYSPNOEA [None]
  - ECONOMIC PROBLEM [None]
  - EMOTIONAL DISORDER [None]
  - ENTEROCOCCUS TEST POSITIVE [None]
  - ESCHERICHIA TEST POSITIVE [None]
  - HYPERKALAEMIA [None]
  - HYPOTENSION [None]
  - INJURY [None]
  - LETHARGY [None]
  - MENTAL DISORDER [None]
  - MUSCULAR WEAKNESS [None]
  - NAUSEA [None]
  - OROPHARYNGEAL PAIN [None]
  - PAIN [None]
  - PYELONEPHRITIS ACUTE [None]
  - RENAL FAILURE ACUTE [None]
  - SINUS CONGESTION [None]
  - SYNCOPE [None]
